FAERS Safety Report 23290378 (Version 1)
Quarter: 2023Q4

REPORT INFORMATION
  Report Type: Spontaneous
  Country: US (occurrence: US)
  Receive Date: 20231213
  Receipt Date: 20231213
  Transmission Date: 20240110
  Serious: Yes (Other)
  Sender: FDA-Public Use
  Company Number: US-AstraZeneca-2023A272300

PATIENT
  Sex: Female

DRUGS (3)
  1. BUDESONIDE [Suspect]
     Active Substance: BUDESONIDE
     Dosage: RESIPIRATORY INHALATION
     Route: 055
  2. SYMBICORT [Suspect]
     Active Substance: BUDESONIDE\FORMOTEROL FUMARATE DIHYDRATE
     Dosage: RESPIRATORY INHALATION
     Route: 055
  3. LYNPARZA [Suspect]
     Active Substance: OLAPARIB
     Route: 048

REACTIONS (3)
  - Neoplasm malignant [Unknown]
  - Tooth disorder [Unknown]
  - Oral disorder [Unknown]
